FAERS Safety Report 7986792-3 (Version None)
Quarter: 2011Q4

REPORT INFORMATION
  Report Type: 
  Country: None (occurrence: None)
  Receive Date: 20111216
  Receipt Date: 20110823
  Transmission Date: 20120403
  Serious: No
  Sender: FDA-Public Use
  Company Number: US-BRISTOL-MYERS SQUIBB COMPANY-15993371

PATIENT
  Age: 48 Year
  Sex: Female
  Weight: 78 kg

DRUGS (7)
  1. SEROQUEL [Suspect]
     Indication: AGITATION
  2. LEXAPRO [Suspect]
  3. SEROQUEL [Suspect]
     Indication: DEPRESSION
  4. SEROQUEL [Suspect]
     Indication: IRRITABILITY
  5. ABILIFY [Suspect]
     Indication: DEPRESSION
  6. ABILIFY [Suspect]
     Indication: AGITATION
  7. ABILIFY [Suspect]
     Indication: IRRITABILITY

REACTIONS (1)
  - OEDEMA [None]
